FAERS Safety Report 6887767-8 (Version None)
Quarter: 2010Q3

REPORT INFORMATION
  Report Type: 
  Country: None (occurrence: None)
  Receive Date: 20100730
  Receipt Date: 20100721
  Transmission Date: 20110219
  Serious: Yes (Hospitalization)
  Sender: FDA-Public Use
  Company Number: HU-ROCHE-716122

PATIENT
  Sex: Female

DRUGS (5)
  1. TRASTUZUMAB [Suspect]
     Indication: BREAST CANCER
     Dosage: LOADING DOSE
     Route: 042
     Dates: start: 20100506
  2. TRASTUZUMAB [Suspect]
     Dosage: MAINTENANCE DOSE.FREQUENCY REPORTED AS TEN DOSES. LAST DOSE PRIOR TO SAE 08 JULY 2010. INTERRUPTED.
     Route: 042
  3. LAPATINIB [Suspect]
     Indication: BREAST CANCER
     Dosage: INTERRUPTED.
     Route: 048
     Dates: start: 20100506, end: 20100519
  4. PACLITAXEL [Suspect]
     Indication: BREAST CANCER
     Dosage: LAST DOSE PRIOR TO SAE 08 JULY 2010. INTERRUPTED. FREQUENCY REPORTED AS TEN DOSES.
     Route: 042
     Dates: start: 20100506
  5. RAMIPRIL [Concomitant]
     Dates: start: 20090101, end: 20100711

REACTIONS (1)
  - ATRIAL FIBRILLATION [None]
